FAERS Safety Report 10238450 (Version 1)
Quarter: 2014Q2

REPORT INFORMATION
  Report Type: Spontaneous
  Country: DE (occurrence: None)
  Receive Date: 20140612
  Receipt Date: 20140612
  Transmission Date: 20141212
  Serious: Yes (Other)
  Sender: FDA-Public Use
  Company Number: SYM-2014-21516

PATIENT
  Age: 31 Year
  Sex: Male

DRUGS (3)
  1. ELONTRIL [Suspect]
     Indication: PRODUCT USED FOR UNKNOWN INDICATION
     Route: 048
     Dates: start: 20140405
  2. VENAFAXINE HYDROCHLORIDE (225 MILLIGRAM) (VENLAFAXINE HYDROCHLORIDE) [Concomitant]
  3. TRIMIPRAMIN (TRIMIPRAMIN) (25 MILLIGRAM) (TRIMIPRAMINE) [Concomitant]

REACTIONS (17)
  - Insomnia [None]
  - Irritability [None]
  - Restlessness [None]
  - Nausea [None]
  - Dizziness [None]
  - Confusional state [None]
  - Impaired work ability [None]
  - Feeling drunk [None]
  - Derealisation [None]
  - Disturbance in attention [None]
  - Impaired driving ability [None]
  - Aggression [None]
  - Sleep disorder [None]
  - Hyperhidrosis [None]
  - Tremor [None]
  - Depersonalisation [None]
  - Vomiting [None]
